FAERS Safety Report 11125246 (Version 1)
Quarter: 2015Q2

REPORT INFORMATION
  Report Type: Spontaneous
  Country: GB (occurrence: GB)
  Receive Date: 20150520
  Receipt Date: 20150520
  Transmission Date: 20150821
  Serious: Yes (Other)
  Sender: FDA-Public Use
  Company Number: GB-ASTRAZENECA-2015SE44553

PATIENT
  Age: 21 Year
  Sex: Male
  Weight: 59 kg

DRUGS (6)
  1. ENOXAPARIN [Concomitant]
     Active Substance: ENOXAPARIN
     Dates: start: 20150417, end: 20150424
  2. NOREPINEPHRINE [Concomitant]
     Active Substance: NOREPINEPHRINE\NOREPINEPHRINE BITARTRATE
  3. MEROPENEM. [Suspect]
     Active Substance: MEROPENEM
     Indication: ABDOMINAL SEPSIS
     Route: 042
     Dates: start: 20150417, end: 20150425
  4. VASOPRESSIN. [Concomitant]
     Active Substance: VASOPRESSIN
  5. RANITIDINE [Concomitant]
     Active Substance: RANITIDINE\RANITIDINE HYDROCHLORIDE
     Dates: start: 20150417
  6. DOBUTAMINE [Concomitant]
     Active Substance: DOBUTAMINE\DOBUTAMINE HYDROCHLORIDE

REACTIONS (4)
  - Transaminases increased [Unknown]
  - Leukopenia [Unknown]
  - Hepatic function abnormal [Unknown]
  - Thrombocytopenia [Unknown]

NARRATIVE: CASE EVENT DATE: 20150424
